FAERS Safety Report 8151654-8 (Version None)
Quarter: 2012Q1

REPORT INFORMATION
  Report Type: 
  Country: None (occurrence: None)
  Receive Date: 20120220
  Receipt Date: 20120210
  Transmission Date: 20120608
  Serious: Yes (Hospitalization)
  Sender: FDA-Public Use
  Company Number: JP-ROCHE-1021736

PATIENT
  Sex: Female
  Weight: 53 kg

DRUGS (9)
  1. ACTEMRA [Suspect]
     Route: 041
     Dates: start: 20120113
  2. ACTEMRA [Suspect]
     Indication: NEUROMYELITIS OPTICA
     Dosage: NOTE: DOSAGE IS UNCERTAIN.
     Route: 041
     Dates: start: 20111102, end: 20111102
  3. PREDNISOLONE [Concomitant]
     Indication: NEUROMYELITIS OPTICA
     Route: 048
     Dates: start: 20000101
  4. FAMOTIDINE [Concomitant]
     Indication: PROPHYLAXIS
     Route: 048
  5. LOXONIN [Concomitant]
     Route: 048
  6. GABAPENTIN [Concomitant]
     Route: 048
  7. BIOFERMIN (LACTOBACTERIA/GLYCOBACTERIA) [Concomitant]
     Route: 048
  8. AZATHIOPRINE [Concomitant]
     Indication: NEUROMYELITIS OPTICA
     Dosage: NOTE: DOSAGE IS UNCERTAIN.
     Route: 048
     Dates: start: 20100201
  9. SULFAMETHOXAZOLE [Concomitant]
     Indication: INFECTION PROPHYLAXIS
     Route: 048
     Dates: start: 20110131

REACTIONS (3)
  - LYMPHOCYTE COUNT DECREASED [None]
  - BLOOD PRESSURE DECREASED [None]
  - GASTROENTERITIS NOROVIRUS [None]
